FAERS Safety Report 5776522-8 (Version None)
Quarter: 2008Q2

REPORT INFORMATION
  Report Type: 
  Country: None (occurrence: None)
  Receive Date: 20080616
  Receipt Date: 20080603
  Transmission Date: 20081010
  Serious: Yes (Hospitalization)
  Sender: FDA-Public Use
  Company Number: 2008-01537

PATIENT
  Age: 60 Year
  Sex: Male
  Weight: 93.2 kg

DRUGS (6)
  1. VELCADE [Suspect]
     Indication: MANTLE CELL LYMPHOMA
     Dosage: 1.5 MG/M2, INTRAVENOUS
     Route: 042
     Dates: start: 20071229, end: 20080107
  2. RITUXIMAB (RITUXIMAB) INJECTION, 375MG/M2 [Suspect]
     Indication: MANTLE CELL LYMPHOMA
  3. CARMUSTINE [Suspect]
     Indication: MANTLE CELL LYMPHOMA
     Dosage: 650 MG, INTRAVENOUS
     Route: 042
     Dates: start: 20080103, end: 20080103
  4. ETOPOSIDE [Suspect]
     Indication: MANTLE CELL LYMPHOMA
     Dosage: 216 MG, INTRAVENOUS
     Route: 042
     Dates: start: 20080104, end: 20080107
  5. CYTARABINE [Suspect]
     Indication: MANTLE CELL LYMPHOMA
     Dosage: 216 MG, INTRAVENOUS
     Route: 042
     Dates: start: 20080104, end: 20080107
  6. MELPHALAN (MELPHALAN) VIA [Suspect]
     Indication: MANTLE CELL LYMPHOMA
     Dosage: 300 MG, INTRAVENOUS
     Route: 042
     Dates: start: 20080108, end: 20080108

REACTIONS (13)
  - ABDOMINAL PAIN [None]
  - ATELECTASIS [None]
  - BLOOD PRESSURE SYSTOLIC DECREASED [None]
  - COLONIC OBSTRUCTION [None]
  - ILEUS [None]
  - NEUTROPENIA [None]
  - PLATELET COUNT DECREASED [None]
  - PNEUMONIA [None]
  - RENAL TUBULAR NECROSIS [None]
  - SEPSIS [None]
  - SPINAL OSTEOARTHRITIS [None]
  - STEM CELL TRANSPLANT [None]
  - WHITE BLOOD CELL COUNT DECREASED [None]
